FAERS Safety Report 7827756-X (Version None)
Quarter: 2011Q4

REPORT INFORMATION
  Report Type: 
  Country: None (occurrence: None)
  Receive Date: 20111020
  Receipt Date: 20111017
  Transmission Date: 20120403
  Serious: Yes (Other)
  Sender: FDA-Public Use
  Company Number: NL-ROXANE LABORATORIES, INC.-2011-RO-01475RO

PATIENT
  Age: 62 Year
  Sex: Female

DRUGS (4)
  1. AZATHIOPRINE [Suspect]
     Indication: COLITIS ULCERATIVE
     Dosage: 50 MG
  2. PREDNISONE [Suspect]
     Indication: COLITIS ULCERATIVE
  3. METHOTREXATE [Suspect]
     Indication: RHEUMATOID ARTHRITIS
  4. MESALAMINE [Suspect]
     Indication: COLITIS ULCERATIVE

REACTIONS (2)
  - EPSTEIN-BARR VIRUS TEST POSITIVE [None]
  - LYMPHOMA [None]
